FAERS Safety Report 4729427-5 (Version None)
Quarter: 2005Q3

REPORT INFORMATION
  Report Type: 
  Country: None (occurrence: None)
  Receive Date: 20050728
  Receipt Date: 20050715
  Transmission Date: 20060218
  Serious: Yes (Other)
  Sender: FDA-Public Use
  Company Number: 2005102789

PATIENT
  Sex: Male
  Weight: 88.4514 kg

DRUGS (3)
  1. LIPITOR [Suspect]
     Indication: BLOOD CHOLESTEROL INCREASED
     Dosage: 10 MG (10 MG, 1 IN 1 D), ORAL
     Route: 048
     Dates: end: 20050601
  2. COENZYME Q10 [Suspect]
     Indication: ILL-DEFINED DISORDER
     Dosage: ORAL
     Route: 048
     Dates: start: 20050601, end: 20050101
  3. LISINOPRIL [Concomitant]

REACTIONS (8)
  - BLOOD CREATINE PHOSPHOKINASE INCREASED [None]
  - CHROMATURIA [None]
  - FATIGUE [None]
  - HYPOAESTHESIA [None]
  - LOW DENSITY LIPOPROTEIN INCREASED [None]
  - MOVEMENT DISORDER [None]
  - MYALGIA [None]
  - PAIN IN EXTREMITY [None]
